FAERS Safety Report 9604429 (Version 4)
Quarter: 2014Q1

REPORT INFORMATION
  Report Type: Spontaneous
  Country: US (occurrence: US)
  Receive Date: 20131008
  Receipt Date: 20140220
  Transmission Date: 20141002
  Serious: Yes (Life-Threatening, Hospitalization, Other)
  Sender: FDA-Public Use
  Company Number: US-ELI_LILLY_AND_COMPANY-US201309009628

PATIENT
  Age: 60 Year
  Sex: Male
  Weight: 78.9 kg

DRUGS (6)
  1. CYMBALTA [Suspect]
     Indication: ANXIETY
     Dosage: 60 MG, QD
     Route: 048
     Dates: start: 20130524, end: 20130528
  2. CYMBALTA [Suspect]
     Indication: BACK PAIN
     Dosage: 90 MG, QD
     Route: 048
     Dates: start: 20130529, end: 20130918
  3. CYMBALTA [Suspect]
     Indication: DEPRESSION
  4. PRAVASTATIN                        /00880402/ [Concomitant]
     Indication: HYPERTENSION
     Dosage: 1 DF, UNKNOWN
     Route: 065
  5. BENICAR [Concomitant]
     Indication: HYPERTENSION
     Dosage: 1 DF, UNKNOWN
     Route: 065
  6. GLUCOSAMINE [Concomitant]
     Indication: PRODUCT USED FOR UNKNOWN INDICATION
     Dosage: UNK, UNKNOWN
     Route: 065

REACTIONS (5)
  - Cardiac arrest [Recovering/Resolving]
  - Loss of consciousness [Recovering/Resolving]
  - Fall [Recovering/Resolving]
  - Tooth injury [Recovering/Resolving]
  - Facial bones fracture [Recovering/Resolving]
